FAERS Safety Report 8844484 (Version 2)
Quarter: 2012Q4

REPORT INFORMATION
  Report Type: Report from Study
  Country: IN (occurrence: IN)
  Receive Date: 20121017
  Receipt Date: 20121106
  Transmission Date: 20130627
  Serious: Yes (Life-Threatening, Hospitalization)
  Sender: FDA-Public Use
  Company Number: IN-NOVOPROD-362028

PATIENT
  Age: 47 Year
  Sex: Female
  Weight: 104.3 kg

DRUGS (9)
  1. LIRAGLUTIDE FLEXPEN [Suspect]
     Indication: OBESITY
     Dosage: 0.6 mg, qd
     Route: 058
     Dates: start: 20111008
  2. LIRAGLUTIDE FLEXPEN [Suspect]
     Dosage: 3.0 mg, qd
     Route: 058
     Dates: start: 20111105, end: 20120927
  3. UDILIV [Concomitant]
     Indication: PRODUCT USED FOR UNKNOWN INDICATION
     Dosage: 150 mg, bid
     Route: 048
  4. PAN [Concomitant]
     Indication: GASTRITIS
     Dosage: 40 mg OD
     Route: 048
     Dates: start: 20120928, end: 20121005
  5. BECOZINC                           /06718701/ [Concomitant]
     Indication: PRODUCT USED FOR UNKNOWN INDICATION
     Dosage: UNK UNK, qd
  6. CROCIN [Concomitant]
     Indication: PRODUCT USED FOR UNKNOWN INDICATION
     Dosage: 500 mg,  OD
     Route: 048
  7. TAXIM                              /00497601/ [Concomitant]
     Indication: PRODUCT USED FOR UNKNOWN INDICATION
     Dosage: 1 g, tid
     Route: 042
  8. LUMART [Concomitant]
     Indication: PRODUCT USED FOR UNKNOWN INDICATION
     Dosage: 80 mg, bd
     Route: 048
  9. LEVOTHYROXINE SODIUM [Concomitant]
     Indication: PRODUCT USED FOR UNKNOWN INDICATION
     Dosage: 0 microgram A to Z OD

REACTIONS (1)
  - Hepatitis A [Recovered/Resolved]
